FAERS Safety Report 7862996-5 (Version None)
Quarter: 2011Q4

REPORT INFORMATION
  Report Type: 
  Country: None (occurrence: None)
  Receive Date: 20111027
  Receipt Date: 20101123
  Transmission Date: 20120403
  Serious: No
  Sender: FDA-Public Use
  Company Number: US-AMGEN-USASP2010006389

PATIENT
  Sex: Female

DRUGS (16)
  1. ADVAIR DISKUS 100/50 [Concomitant]
  2. ECHINACEA                          /01323501/ [Concomitant]
  3. PREDNISONE [Concomitant]
  4. DUONEB [Concomitant]
  5. ENBREL [Suspect]
     Indication: RHEUMATOID ARTHRITIS
     Dosage: 50 MG, QWK
     Dates: start: 20090701
  6. FOLBIC [Concomitant]
  7. LEFLUNOMIDE [Concomitant]
  8. OMEPRAZOLE [Concomitant]
  9. SINGULAIR [Concomitant]
  10. VITAMIN C                          /00008001/ [Concomitant]
  11. HYDROCHLOROTHIAZIDE [Concomitant]
  12. MELOXICAM [Concomitant]
  13. PROAIR HFA [Concomitant]
  14. MILNACIPRAN HYDROCHLORIDE [Concomitant]
  15. VICODIN [Concomitant]
  16. FEXOFENADINE [Concomitant]

REACTIONS (5)
  - PYREXIA [None]
  - COUGH [None]
  - DYSPNOEA [None]
  - APHONIA [None]
  - CHILLS [None]
